FAERS Safety Report 5977806-0 (Version None)
Quarter: 2008Q4

REPORT INFORMATION
  Report Type: 
  Country: None (occurrence: None)
  Receive Date: 20081201
  Receipt Date: 20081201
  Transmission Date: 20090506
  Serious: Yes (Life-Threatening, Other)
  Sender: FDA-Public Use
  Company Number: None

PATIENT
  Age: 52 Year
  Sex: Female
  Weight: 111.1313 kg

DRUGS (1)
  1. MORPHINE SUL IMM REL TABS 15MG ETHEX [Suspect]
     Indication: FIBROMYALGIA
     Dosage: 1 TAB BY MOUTH TWICE A DAY TWICE A DAY OROPHARINGEAL
     Route: 049
     Dates: start: 20080901, end: 20081129

REACTIONS (5)
  - BLOOD PRESSURE INCREASED [None]
  - BURNING SENSATION [None]
  - DISCOMFORT [None]
  - DIZZINESS [None]
  - FEAR [None]
